FAERS Safety Report 7549259-2 (Version None)
Quarter: 2011Q2

REPORT INFORMATION
  Report Type: 
  Country: None (occurrence: None)
  Receive Date: 20110615
  Receipt Date: 20110615
  Transmission Date: 20111010
  Serious: Yes (Hospitalization)
  Sender: FDA-Public Use
  Company Number: PHHO1999FR00024

PATIENT
  Sex: Male
  Weight: 69.4 kg

DRUGS (4)
  1. BASILIXIMAB [Suspect]
     Dosage: 20 MG, OT
     Route: 042
     Dates: start: 19980901
  2. CELLCEPT [Suspect]
  3. NEORAL [Suspect]
  4. CORTICOSTEROIDS (CORTICOSTEROIDS) [Suspect]

REACTIONS (2)
  - CYTOMEGALOVIRUS INFECTION [None]
  - LYMPHOEDEMA [None]
